FAERS Safety Report 5621925-5 (Version None)
Quarter: 2008Q1

REPORT INFORMATION
  Report Type: 
  Country: None (occurrence: None)
  Receive Date: 20080114
  Receipt Date: 20070621
  Transmission Date: 20080703
  Serious: Yes (Hospitalization)
  Sender: FDA-Public Use
  Company Number: A03200704243

PATIENT
  Age: 85 Year
  Sex: Female
  Weight: 51.7 kg

DRUGS (1)
  1. PLAVIX [Suspect]
     Indication: CARDIAC PACEMAKER INSERTION
     Dosage: 75 MG QD -ORAL
     Route: 048
     Dates: start: 20060101, end: 20061201

REACTIONS (1)
  - HAEMORRHAGE [None]
